FAERS Safety Report 16626064 (Version 1)
Quarter: 2019Q3

REPORT INFORMATION
  Report Type: Spontaneous
  Country: DK (occurrence: DK)
  Receive Date: 20190724
  Receipt Date: 20190724
  Transmission Date: 20191004
  Serious: Yes (Other)
  Sender: FDA-Public Use
  Company Number: PHHY2019DK169949

PATIENT
  Age: 76 Year
  Sex: Female

DRUGS (1)
  1. COSENTYX [Suspect]
     Active Substance: SECUKINUMAB
     Indication: PSORIASIS
     Dosage: 2 DF, Q5W
     Route: 042
     Dates: start: 201609

REACTIONS (1)
  - Basal cell carcinoma [Unknown]

NARRATIVE: CASE EVENT DATE: 20181030
